FAERS Safety Report 8210624-1 (Version None)
Quarter: 2012Q1

REPORT INFORMATION
  Report Type: 
  Country: None (occurrence: None)
  Receive Date: 20120314
  Receipt Date: 20120312
  Transmission Date: 20120608
  Serious: Yes (Disabling)
  Sender: FDA-Public Use
  Company Number: GB-MERCK-1203GBR00039

PATIENT
  Sex: Female

DRUGS (4)
  1. IBUPROFEN [Concomitant]
     Indication: PAIN
     Route: 065
     Dates: start: 20020101
  2. ATENOLOL [Concomitant]
     Route: 065
  3. ZOCOR [Suspect]
     Route: 048
     Dates: start: 20020101, end: 20070101
  4. ZOCOR [Suspect]
     Route: 048
     Dates: start: 20070101, end: 20110701

REACTIONS (18)
  - MYALGIA [None]
  - MUSCULOSKELETAL PAIN [None]
  - CARDIAC DISORDER [None]
  - PALPITATIONS [None]
  - OEDEMA PERIPHERAL [None]
  - ABASIA [None]
  - ARTHRALGIA [None]
  - JOINT SWELLING [None]
  - MUSCLE ATROPHY [None]
  - MUSCULAR WEAKNESS [None]
  - NECK PAIN [None]
  - DISTURBANCE IN ATTENTION [None]
  - PAIN IN EXTREMITY [None]
  - FINGER DEFORMITY [None]
  - LIVER TENDERNESS [None]
  - DYSKINESIA [None]
  - BACK PAIN [None]
  - PERFORMANCE STATUS DECREASED [None]
